FAERS Safety Report 4618021-2 (Version None)
Quarter: 2005Q1

REPORT INFORMATION
  Report Type: 
  Country: None (occurrence: None)
  Receive Date: 20050322
  Receipt Date: 20050311
  Transmission Date: 20050727
  Serious: Yes (Life-Threatening)
  Sender: FDA-Public Use
  Company Number: S05-USA-01422-01

PATIENT
  Age: 52 Year
  Sex: Female

DRUGS (5)
  1. THYROID TAB [Suspect]
     Indication: HYPOTHYROIDISM
     Dosage: 15 MG BID PO
     Route: 048
     Dates: start: 19950101, end: 19950101
  2. THYROID TAB [Suspect]
     Indication: HYPOTHYROIDISM
     Dosage: 15 MG BID PO
     Route: 048
     Dates: start: 20010101
  3. AMBIEN [Suspect]
     Indication: SLEEP DISORDER
     Dates: end: 19950101
  4. ANTIBIOTIC [Suspect]
     Indication: BRONCHITIS
     Dates: start: 19950101, end: 19950101
  5. AMBIEN [Suspect]
     Indication: SLEEP DISORDER

REACTIONS (7)
  - BRONCHITIS [None]
  - COLD SWEAT [None]
  - DRUG HYPERSENSITIVITY [None]
  - DYSPNOEA [None]
  - HEART RATE INCREASED [None]
  - RASH [None]
  - THROAT TIGHTNESS [None]
